FAERS Safety Report 24813608 (Version 1)
Quarter: 2025Q1

REPORT INFORMATION
  Report Type: Spontaneous
  Country: US (occurrence: US)
  Receive Date: 20250107
  Receipt Date: 20250107
  Transmission Date: 20250409
  Serious: Yes (Hospitalization)
  Sender: PURACAP PHARMACEUTICAL LLC
  Company Number: US-PURACAP-US-2024EPCLIT01619

PATIENT
  Age: 71 Year
  Sex: Male

DRUGS (2)
  1. ERGOCALCIFEROL [Suspect]
     Active Substance: ERGOCALCIFEROL
     Indication: Vitamin supplementation
     Route: 065
  2. CALCIUM [Concomitant]
     Active Substance: CALCIUM
     Indication: Product used for unknown indication
     Route: 065

REACTIONS (3)
  - Muscular weakness [Recovering/Resolving]
  - Toxicity to various agents [Unknown]
  - Intentional product misuse [Unknown]
